FAERS Safety Report 4268716-8 (Version None)
Quarter: 2004Q1

REPORT INFORMATION
  Report Type: 
  Country: None (occurrence: None)
  Receive Date: 20040109
  Receipt Date: 20031222
  Transmission Date: 20041129
  Serious: Yes (Hospitalization, Other)
  Sender: FDA-Public Use
  Company Number: GBT031001018

PATIENT
  Age: 56 Year
  Sex: Female
  Weight: 74 kg

DRUGS (6)
  1. HUMATROPE [Suspect]
     Indication: GROWTH HORMONE DEFICIENCY
     Dosage: 0.4 MG
     Dates: start: 20030101, end: 20030701
  2. THYROXINE [Concomitant]
  3. DDAVP [Concomitant]
  4. WARFARIN SODIUM [Concomitant]
  5. LIVIAL (TIBOLONE) [Concomitant]
  6. DIGOXIN [Concomitant]

REACTIONS (5)
  - FATIGUE [None]
  - HEADACHE [None]
  - PYREXIA [None]
  - TACHYCARDIA [None]
  - VOMITING [None]
